FAERS Safety Report 7056731-0 (Version None)
Quarter: 2010Q4

REPORT INFORMATION
  Report Type: 
  Country: None (occurrence: None)
  Receive Date: 20101022
  Receipt Date: 20101013
  Transmission Date: 20110411
  Serious: Yes (Hospitalization, Other)
  Sender: FDA-Public Use
  Company Number: US-BIOGENIDEC-2010BI035723

PATIENT
  Age: 62 Year
  Sex: Female

DRUGS (7)
  1. TYSABRI [Suspect]
     Indication: MULTIPLE SCLEROSIS
     Route: 042
     Dates: start: 20080703
  2. METFORMIN [Concomitant]
     Indication: DIABETES MELLITUS
     Dates: start: 19900101
  3. BACLOFEN [Concomitant]
     Indication: MUSCLE SPASTICITY
  4. MEDICATION (NOS) [Concomitant]
     Indication: MUSCLE SPASTICITY
  5. MEDICATION (NOS) [Concomitant]
     Indication: DIZZINESS
  6. ESZOPIDONE [Concomitant]
     Indication: SLEEP DISORDER
  7. LORAZEPAM [Concomitant]
     Indication: SLEEP DISORDER

REACTIONS (5)
  - CONVULSION [None]
  - MOTOR DYSFUNCTION [None]
  - MULTIPLE SCLEROSIS RELAPSE [None]
  - MUSCULAR WEAKNESS [None]
  - PNEUMONIA ASPIRATION [None]
